FAERS Safety Report 12839895 (Version 1)
Quarter: 2016Q4

REPORT INFORMATION
  Report Type: Spontaneous
  Country: US (occurrence: US)
  Receive Date: 20161012
  Receipt Date: 20161012
  Transmission Date: 20170207
  Serious: Yes (Death)
  Sender: FDA-Public Use
  Company Number: US-PFIZER INC-2016474291

PATIENT
  Age: 76 Year
  Sex: Female
  Weight: 53.52 kg

DRUGS (1)
  1. REVATIO [Suspect]
     Active Substance: SILDENAFIL CITRATE
     Indication: LUNG DISORDER
     Dosage: 40 MG, 3X/DAY
     Route: 048
     Dates: start: 2012

REACTIONS (2)
  - Product use issue [Unknown]
  - Respiratory failure [Fatal]

NARRATIVE: CASE EVENT DATE: 2012
